FAERS Safety Report 4567214-1 (Version None)
Quarter: 2005Q1

REPORT INFORMATION
  Report Type: 
  Country: None (occurrence: None)
  Receive Date: 20050201
  Receipt Date: 20020311
  Transmission Date: 20050727
  Serious: Yes (Hospitalization)
  Sender: FDA-Public Use
  Company Number: 2002004234

PATIENT
  Age: 30 Year
  Sex: Female
  Weight: 52 kg

DRUGS (4)
  1. EUSAPRIM FORTE [Suspect]
     Dosage: 3TAB SINGLE DOSE
     Route: 048
     Dates: start: 20020308
  2. COTRIM FORTE [Suspect]
     Dosage: 8TAB SINGLE DOSE
     Route: 048
     Dates: start: 20020308
  3. BRONCHIPRET [Suspect]
     Dosage: 6TAB SINGLE DOSE
     Route: 048
     Dates: start: 20020308
  4. ARTHROTEC [Suspect]
     Dosage: 9TAB SINGLE DOSE
     Route: 048
     Dates: start: 20020308

REACTIONS (5)
  - FATIGUE [None]
  - INTENTIONAL MISUSE [None]
  - NAUSEA [None]
  - SUICIDE ATTEMPT [None]
  - VOMITING [None]
